FAERS Safety Report 24389684 (Version 1)
Quarter: 2024Q4

REPORT INFORMATION
  Report Type: Spontaneous
  Country: US (occurrence: US)
  Receive Date: 20241003
  Receipt Date: 20241003
  Transmission Date: 20250115
  Serious: No
  Sender: STRIDES
  Company Number: US-STRIDES ARCOLAB LIMITED-2024SP003712

PATIENT
  Age: 21 Year
  Sex: Female

DRUGS (2)
  1. PREDNISOLONE [Suspect]
     Active Substance: PREDNISOLONE
     Indication: Epidermolysis bullosa
     Dosage: 20 MILLIGRAM
     Route: 065
  2. PREDNISOLONE [Suspect]
     Active Substance: PREDNISOLONE
     Dosage: UNK, DOSE TAPER
     Route: 065

REACTIONS (2)
  - Disease recurrence [Unknown]
  - Maternal exposure during pregnancy [Unknown]
